FAERS Safety Report 24207422 (Version 3)
Quarter: 2024Q4

REPORT INFORMATION
  Report Type: Spontaneous
  Country: US (occurrence: US)
  Receive Date: 20240814
  Receipt Date: 20241104
  Transmission Date: 20250115
  Serious: No
  Sender: ELI LILLY AND COMPANY
  Company Number: US-ELI_LILLY_AND_COMPANY-US202408008103

PATIENT
  Age: 56 Year
  Sex: Male

DRUGS (2)
  1. CIALIS [Suspect]
     Active Substance: TADALAFIL
     Indication: Product used for unknown indication
     Dosage: 20 MG, UNKNOWN
     Route: 065
  2. CIALIS [Suspect]
     Active Substance: TADALAFIL
     Indication: Product used for unknown indication
     Dosage: 2 DOSAGE FORM, UNKNOWN
     Route: 065

REACTIONS (4)
  - Libido increased [Unknown]
  - Erection increased [Unknown]
  - Erection increased [Unknown]
  - Erection increased [Unknown]

NARRATIVE: CASE EVENT DATE: 20240813
